FAERS Safety Report 8157392-X (Version None)
Quarter: 2012Q1

REPORT INFORMATION
  Report Type: 
  Country: None (occurrence: None)
  Receive Date: 20120103
  Receipt Date: 20111109
  Transmission Date: 20120608
  Serious: No
  Sender: FDA-Public Use
  Company Number: AE-2011-002008

PATIENT
  Age: 49 Year
  Sex: Female
  Weight: 85 kg

DRUGS (7)
  1. PEGASYS [Concomitant]
  2. NORVASC [Concomitant]
  3. ZANTAC [Concomitant]
  4. PROPRANOLOL [Concomitant]
  5. RIBAVIRIN [Concomitant]
  6. HYDROCODONE BITARTRATE [Concomitant]
  7. INCIVEK [Suspect]
     Dosage: 2250 MG (750 MG, 3 IN 1 D)
     Dates: start: 20111003, end: 20111016

REACTIONS (4)
  - WEIGHT DECREASED [None]
  - BLOOD PRESSURE INCREASED [None]
  - HEADACHE [None]
  - FEELING COLD [None]
